FAERS Safety Report 8006158-X (Version None)
Quarter: 2011Q4

REPORT INFORMATION
  Report Type: 
  Country: None (occurrence: None)
  Receive Date: 20111226
  Receipt Date: 20111216
  Transmission Date: 20120403
  Serious: Yes (Death)
  Sender: FDA-Public Use
  Company Number: FR-BRISTOL-MYERS SQUIBB COMPANY-16313264

PATIENT
  Age: 72 Year
  Sex: Male

DRUGS (12)
  1. CORDARONE [Concomitant]
     Dosage: FORMULATION: TAB
  2. ERBITUX [Suspect]
     Indication: COLON CANCER
     Route: 042
     Dates: start: 20111111
  3. ASPIRIN [Concomitant]
     Dosage: FORMULATION:POWDER FOR ORAL SOLN
     Route: 048
  4. NEXIUM [Concomitant]
     Dosage: FORMULATION:GASTRO RESISTANT TAB
  5. AMLODIPINE BESYLATE [Concomitant]
     Dosage: FORMULATION:CAPS
  6. PERINDOPRIL ERBUMINE [Concomitant]
     Dosage: FORMULATION:TAB
  7. IMODIUM [Concomitant]
  8. ALFUZOSIN HCL [Concomitant]
     Dosage: FORMULATION:PROLONG RELEASE TAB
  9. ALUMINUM HYDROXIDE AND MAGNESIUM TRISILICATE [Concomitant]
  10. ATORVASTATIN CALCIUM [Concomitant]
     Dosage: FORMULATION:TAB
  11. FLUOROURACIL [Suspect]
     Indication: COLON CANCER
     Route: 042
     Dates: start: 20111111
  12. OXALIPLATIN [Suspect]
     Indication: COLON CANCER
     Route: 042
     Dates: start: 20111111

REACTIONS (2)
  - SEPTIC SHOCK [None]
  - AGRANULOCYTOSIS [None]
